FAERS Safety Report 21162137 (Version 1)
Quarter: 2022Q3

REPORT INFORMATION
  Report Type: Spontaneous
  Country: US (occurrence: US)
  Receive Date: 20220802
  Receipt Date: 20220802
  Transmission Date: 20221027
  Serious: Yes (Other)
  Sender: FDA-Public Use
  Company Number: US-AMERICAN REGENT INC-2022002177

PATIENT
  Age: 28 Year
  Sex: Male

DRUGS (2)
  1. EPINEPHRINE [Suspect]
     Active Substance: EPINEPHRINE
     Indication: Swollen tongue
     Dosage: 0.5 MILLIGRAM, SINGLE
     Route: 042
  2. DIPHENHYDRAMINE [Concomitant]
     Active Substance: DIPHENHYDRAMINE
     Indication: Swollen tongue
     Dosage: 25 MILLIGRAM, SINGLE
     Route: 042

REACTIONS (2)
  - Arteriospasm coronary [Unknown]
  - Incorrect route of product administration [Unknown]
